FAERS Safety Report 8050357-8 (Version None)
Quarter: 2012Q1

REPORT INFORMATION
  Report Type: 
  Country: None (occurrence: None)
  Receive Date: 20120111
  Receipt Date: 20111228
  Transmission Date: 20120608
  Serious: Yes (Hospitalization, Other)
  Sender: FDA-Public Use
  Company Number: 2011MA018150

PATIENT
  Sex: Male
  Weight: 70.58 kg

DRUGS (9)
  1. DIGOXIN [Suspect]
     Dosage: 0.125 MG;QD;PO
     Route: 048
     Dates: start: 20071007, end: 20080410
  2. LOSARTAN POTASSIUM [Concomitant]
  3. METOPROLOL TARTRATE [Concomitant]
  4. ASPIRIN [Concomitant]
  5. VITAMIN B COMPLEX CAP [Concomitant]
  6. SEVELAMER [Concomitant]
  7. DIAZEPAM [Concomitant]
  8. CALCIUM ACETATE [Concomitant]
  9. ZINC GLUCONATE [Concomitant]

REACTIONS (7)
  - FLUID OVERLOAD [None]
  - CARDIOMYOPATHY [None]
  - COUGH [None]
  - BRONCHITIS [None]
  - ADVERSE EVENT [None]
  - CHEST PAIN [None]
  - NUTRITIONAL CONDITION ABNORMAL [None]
